FAERS Safety Report 9773904 (Version 2)
Quarter: 2014Q1

REPORT INFORMATION
  Report Type: Report from Study
  Country: US (occurrence: US)
  Receive Date: 20131220
  Receipt Date: 20140103
  Transmission Date: 20141002
  Serious: Yes (Other)
  Sender: FDA-Public Use
  Company Number: US-ROCHE-1321862

PATIENT
  Sex: Female
  Weight: 90.8 kg

DRUGS (2)
  1. RITUXAN [Suspect]
     Indication: RHEUMATOID ARTHRITIS
     Route: 042
  2. RITUXAN [Suspect]
     Indication: AUTOIMMUNE HAEMOLYTIC ANAEMIA

REACTIONS (1)
  - Splenectomy [Unknown]
